FAERS Safety Report 19259948 (Version 1)
Quarter: 2021Q2

REPORT INFORMATION
  Report Type: Spontaneous
  Country: US (occurrence: US)
  Receive Date: 20210514
  Receipt Date: 20210514
  Transmission Date: 20210717
  Serious: No
  Sender: FDA-Public Use
  Company Number: US-ROMARKLABS-2020-US-000296

PATIENT
  Sex: Female

DRUGS (1)
  1. ALINIA [Suspect]
     Active Substance: NITAZOXANIDE
     Indication: COVID-19 PROPHYLAXIS
     Dosage: 1 TABLET TWICE DAILY
     Route: 048
     Dates: start: 20201124, end: 20201130

REACTIONS (6)
  - Palpitations [Recovered/Resolved]
  - Angina pectoris [Recovered/Resolved]
  - Visual impairment [Recovered/Resolved]
  - Tinnitus [Recovered/Resolved]
  - Jarisch-Herxheimer reaction [Recovered/Resolved]
  - Abdominal discomfort [Unknown]

NARRATIVE: CASE EVENT DATE: 202011
